FAERS Safety Report 23596026 (Version 1)
Quarter: 2024Q1

REPORT INFORMATION
  Report Type: Spontaneous
  Country: US (occurrence: US)
  Receive Date: 20240305
  Receipt Date: 20240305
  Transmission Date: 20240410
  Serious: No
  Sender: FDA-Public Use
  Company Number: US-GALDERMA-US2024002112

PATIENT

DRUGS (1)
  1. DIFFERIN [Suspect]
     Active Substance: ADAPALENE
     Indication: Product used for unknown indication
     Dosage: 1 DOSAGE FORM, USED FOR ABOUT 11 DAYS
     Route: 061
     Dates: start: 202401, end: 2024

REACTIONS (5)
  - Dry skin [Unknown]
  - Skin exfoliation [Unknown]
  - Eye swelling [Unknown]
  - Lip swelling [Unknown]
  - Skin erosion [Unknown]

NARRATIVE: CASE EVENT DATE: 20240101
